FAERS Safety Report 19348948 (Version 1)
Quarter: 2021Q2

REPORT INFORMATION
  Report Type: Spontaneous
  Country: US (occurrence: US)
  Receive Date: 20210529
  Receipt Date: 20210529
  Transmission Date: 20210717
  Serious: Yes (Disabling)
  Sender: FDA-Public Use
  Company Number: None

PATIENT
  Age: 33 Year
  Sex: Female
  Weight: 76.5 kg

DRUGS (1)
  1. GABAPENTIN CAPS 300MG [Suspect]
     Active Substance: GABAPENTIN
     Indication: INTERVERTEBRAL DISC PROTRUSION
     Dosage: ?          QUANTITY:1 CAPSULE(S);?
     Route: 048

REACTIONS (3)
  - Toothache [None]
  - Tooth injury [None]
  - Hyperaesthesia teeth [None]

NARRATIVE: CASE EVENT DATE: 20210426
